FAERS Safety Report 8555579-5 (Version None)
Quarter: 2012Q3

REPORT INFORMATION
  Report Type: 
  Country: None (occurrence: None)
  Receive Date: 20120731
  Receipt Date: 20110726
  Transmission Date: 20120928
  Serious: No
  Sender: FDA-Public Use
  Company Number: US-ASTRAZENECA-2009UW19101

PATIENT
  Sex: Female
  Weight: 88.5 kg

DRUGS (17)
  1. CRESTOR [Concomitant]
     Dates: start: 20060505
  2. ALPRAZOLAM [Concomitant]
     Dates: start: 20050401
  3. WELLBUTRIN XL [Concomitant]
     Dates: start: 20050419
  4. LUNESTA [Concomitant]
     Dates: start: 20050502
  5. PLAVIX [Concomitant]
     Dates: start: 20050512
  6. NEXIUM [Concomitant]
     Dates: start: 20050401
  7. METHENAMINE MAN [Concomitant]
     Dates: start: 20050523
  8. CLONAZEPAM [Concomitant]
     Dates: start: 20050502
  9. CYMBALTA [Concomitant]
     Dosage: 30-60 MG
     Dates: start: 20050502
  10. CYMBALTA [Concomitant]
     Dates: start: 20060531
  11. SEROQUEL [Suspect]
     Indication: ANXIETY
     Route: 048
     Dates: start: 20050602
  12. SEROQUEL [Suspect]
     Dosage: 50 MG TO 100 MG
     Route: 048
     Dates: start: 20060531
  13. PLAVIX [Concomitant]
     Dates: start: 20060601
  14. SEROQUEL [Suspect]
     Route: 048
  15. CLONAZEPAM [Concomitant]
     Dates: start: 20060531
  16. RISPERDAL [Concomitant]
     Dates: start: 20050426
  17. CRESTOR [Concomitant]
     Dates: start: 20050401

REACTIONS (2)
  - TYPE 2 DIABETES MELLITUS [None]
  - PANIC ATTACK [None]
